FAERS Safety Report 24533826 (Version 1)
Quarter: 2024Q4

REPORT INFORMATION
  Report Type: Spontaneous
  Country: GB (occurrence: GB)
  Receive Date: 20241022
  Receipt Date: 20241022
  Transmission Date: 20250115
  Serious: Yes (Other)
  Sender: BAXTER
  Company Number: GB-BAXTER-2024BAX025970

PATIENT

DRUGS (1)
  1. TISSEEL [Suspect]
     Active Substance: FIBRINOGEN HUMAN\THROMBIN HUMAN
     Indication: Cerebrospinal fluid leakage
     Dosage: APPLIED THROUGH THE EAR CANAL, PAST THE DRUM, INTO THE MIDDLE EAR AND UP INTO WHERE THE TEGMEN BONE
     Route: 065
     Dates: start: 2024

REACTIONS (3)
  - Hypoacusis [Unknown]
  - Tinnitus [Unknown]
  - Ear discomfort [Unknown]
